FAERS Safety Report 20520116 (Version 2)
Quarter: 2022Q1

REPORT INFORMATION
  Report Type: Spontaneous
  Country: GB (occurrence: GB)
  Receive Date: 20220225
  Receipt Date: 20220309
  Transmission Date: 20220423
  Serious: Yes (Hospitalization, Other)
  Sender: FDA-Public Use
  Company Number: None

PATIENT
  Age: 55 Year
  Sex: Female
  Weight: 63.5 kg

DRUGS (39)
  1. FILGRASTIM [Suspect]
     Active Substance: FILGRASTIM
     Indication: White blood cell count decreased
     Dosage: UNK
     Route: 065
     Dates: start: 20200512, end: 20200515
  2. PACLITAXEL [Suspect]
     Active Substance: PACLITAXEL
     Indication: Neoplasm malignant
     Dosage: 10 MILLIGRAM
     Route: 065
     Dates: start: 20200325, end: 20200325
  3. CARBOPLATIN [Suspect]
     Active Substance: CARBOPLATIN
     Indication: Neoplasm malignant
     Dosage: UNK
     Route: 065
  4. ATEZOLIZUMAB [Suspect]
     Active Substance: ATEZOLIZUMAB
     Indication: Neoplasm malignant
     Dosage: 1200 UNK, 1 DOSE PER3 W
     Route: 041
     Dates: start: 20200415
  5. ATEZOLIZUMAB [Suspect]
     Active Substance: ATEZOLIZUMAB
     Dosage: 1200 MILLIGRAM, 1 DOSE PER3 W
     Route: 041
     Dates: start: 20200513, end: 20200715
  6. ATEZOLIZUMAB [Suspect]
     Active Substance: ATEZOLIZUMAB
     Dosage: 1200 MILLIGRAM, 1 DOSE PER3 W
     Route: 041
     Dates: start: 20200805
  7. ATEZOLIZUMAB [Suspect]
     Active Substance: ATEZOLIZUMAB
     Dosage: 1200 MILLIGRAM, 1 DOSE PER3 W
     Route: 041
     Dates: start: 20200826
  8. ATEZOLIZUMAB [Suspect]
     Active Substance: ATEZOLIZUMAB
     Dosage: 1200 MILLIGRAM, 1 DOSE PER3 W
     Route: 041
     Dates: start: 20200715
  9. ATEZOLIZUMAB [Suspect]
     Active Substance: ATEZOLIZUMAB
     Dosage: 1200 MILLIGRAM, 1 DOSE PER3 W
     Route: 041
     Dates: start: 20200212, end: 20200415
  10. ATEZOLIZUMAB [Suspect]
     Active Substance: ATEZOLIZUMAB
     Dosage: 1200 MILLIGRAM, 1 DOSE PER3 W
     Route: 041
     Dates: start: 20200603
  11. ATEZOLIZUMAB [Suspect]
     Active Substance: ATEZOLIZUMAB
     Dosage: 1200 MILLIGRAM, 1 DOSE PER3 W
     Route: 041
     Dates: start: 20200212, end: 20200415
  12. ATEZOLIZUMAB [Suspect]
     Active Substance: ATEZOLIZUMAB
     Dosage: 1200 MILLIGRAM, 1 DOSE PER3 W
     Route: 041
     Dates: start: 20200325
  13. ATEZOLIZUMAB [Suspect]
     Active Substance: ATEZOLIZUMAB
     Dosage: 1200 MILLIGRAM
     Route: 041
     Dates: start: 20200204
  14. ATEZOLIZUMAB [Suspect]
     Active Substance: ATEZOLIZUMAB
     Dosage: 1200 MILLIGRAM, 1 DOSE PER3 W
     Route: 041
     Dates: start: 20200624
  15. ATEZOLIZUMAB [Suspect]
     Active Substance: ATEZOLIZUMAB
     Dosage: 1200 MILLIGRAM, 1 DOSE PER3 W
     Route: 041
     Dates: start: 20200312
  16. ATEZOLIZUMAB [Suspect]
     Active Substance: ATEZOLIZUMAB
     Dosage: 1200 UNK, 1 DOSE PER3 W
     Route: 041
     Dates: start: 20200916
  17. ATEZOLIZUMAB [Suspect]
     Active Substance: ATEZOLIZUMAB
     Dosage: 1200 MILLIGRAM, 1 DOSE PER3 W
     Route: 041
     Dates: start: 20200304
  18. BEVACIZUMAB [Suspect]
     Active Substance: BEVACIZUMAB
     Indication: Neoplasm malignant
     Dosage: UNK
     Route: 041
  19. ETOPOSIDE [Suspect]
     Active Substance: ETOPOSIDE
     Indication: Neoplasm malignant
     Dosage: UNK
     Route: 065
  20. FAMOTIDINE [Suspect]
     Active Substance: FAMOTIDINE
     Indication: Product used for unknown indication
     Dosage: 40 MILLIGRAM, START DATE-STOP DATE 12-FEB-2020
     Route: 065
     Dates: start: 20200212, end: 20200212
  21. GRANULOCYTE COLONY-STIMULATING FACTOR NOS [Suspect]
     Active Substance: GRANULOCYTE COLONY-STIMULATING FACTOR NOS
     Indication: White blood cell count decreased
     Dosage: UNK
     Route: 065
     Dates: start: 20200512, end: 20200515
  22. PROLIA [Suspect]
     Active Substance: DENOSUMAB
     Indication: Bone pain
     Dosage: UNK
     Route: 065
     Dates: start: 20200803
  23. CHLORPHENIRAMINE MALEATE [Concomitant]
     Active Substance: CHLORPHENIRAMINE MALEATE
     Indication: Product used for unknown indication
     Dosage: 10 MILLIGRAM, STRAT/ STOP DATE 25-MAR-2020
     Route: 065
     Dates: start: 20200304, end: 20200304
  24. CHLORPHENIRAMINE MALEATE [Concomitant]
     Active Substance: CHLORPHENIRAMINE MALEATE
     Dosage: 10 MILLIGRAM, START-STOP 04-MAR-2020
     Route: 065
     Dates: start: 20200325, end: 20200325
  25. CYCLIZINE [Concomitant]
     Active Substance: CYCLIZINE
     Indication: Nausea
     Dosage: UNK
     Route: 065
     Dates: start: 20190524
  26. CYCLIZINE [Concomitant]
     Active Substance: CYCLIZINE
     Dosage: UNK, AS NECESSARY
     Route: 065
     Dates: start: 20200811
  27. DEXAMETHASONE [Concomitant]
     Active Substance: DEXAMETHASONE
     Indication: Nausea
     Dosage: 1 MG EVERY DAY
     Route: 065
     Dates: start: 20200504, end: 20200504
  28. DEXAMETHASONE [Concomitant]
     Active Substance: DEXAMETHASONE
     Dosage: 20 MILLIGRAM, STOP 25-MAR-2020
     Route: 065
     Dates: start: 20200325, end: 20200325
  29. DEXAMETHASONE [Concomitant]
     Active Substance: DEXAMETHASONE
     Dosage: 20 MILLIGRAM, STOP 12-FEB-2020
     Route: 065
     Dates: start: 20200212, end: 20200212
  30. DEXAMETHASONE [Concomitant]
     Active Substance: DEXAMETHASONE
     Dosage: 20 MILLIGRAM, STOP 04-MAR-2020
     Route: 065
     Dates: start: 20200304, end: 20200304
  31. LOPERAMIDE [Concomitant]
     Active Substance: LOPERAMIDE
     Indication: Diarrhoea
     Dosage: UNK
     Route: 065
     Dates: start: 20200601
  32. METOCLOPRAMIDE [Concomitant]
     Active Substance: METOCLOPRAMIDE
     Indication: Vomiting
     Dosage: UNK
     Route: 030
     Dates: start: 20200511, end: 20200511
  33. MORPHINE [Concomitant]
     Active Substance: MORPHINE
     Indication: Pain in extremity
     Dosage: UNK
     Route: 065
     Dates: start: 20200829
  34. ONDANSETRON [Concomitant]
     Active Substance: ONDANSETRON
     Indication: Product used for unknown indication
     Dosage: 8 MILLIGRAM, STOP 12-FEB-2020
     Route: 065
     Dates: start: 20200212, end: 20200212
  35. PREDNISOLONE [Concomitant]
     Active Substance: PREDNISOLONE
     Indication: Hepatic failure
     Dosage: 1 DOSAGE FORM, 1 DOSE PER 1 D
     Route: 065
     Dates: start: 20200921, end: 20200925
  36. PREDNISOLONE [Concomitant]
     Active Substance: PREDNISOLONE
     Dosage: 50 MILLIGRAM
     Route: 065
     Dates: start: 20200325, end: 20200325
  37. PREDNISOLONE [Concomitant]
     Active Substance: PREDNISOLONE
     Dosage: 1 DOSAGE FORM, QD
     Route: 065
     Dates: start: 20200926, end: 20201005
  38. RANITIDINE [Concomitant]
     Active Substance: RANITIDINE
     Indication: Product used for unknown indication
     Dosage: 50 MILLIGRAM, STOP 25-MAR-2020
     Route: 065
     Dates: start: 20200325
  39. RANITIDINE [Concomitant]
     Active Substance: RANITIDINE
     Dosage: 50 MILLIGRAM , STOP 04-MAR-2020
     Route: 065
     Dates: start: 20200304

REACTIONS (23)
  - Ear pain [Not Recovered/Not Resolved]
  - White blood cell count decreased [Recovered/Resolved]
  - Blood magnesium decreased [Recovering/Resolving]
  - Weight decreased [Recovered/Resolved]
  - Autoimmune haemolytic anaemia [Recovering/Resolving]
  - Intentional product use issue [Unknown]
  - Autoimmune haemolytic anaemia [Recovering/Resolving]
  - Ear pain [Not Recovered/Not Resolved]
  - Abdominal pain upper [Unknown]
  - Disease progression [Unknown]
  - Decreased appetite [Not Recovered/Not Resolved]
  - Haemoglobin decreased [Recovered/Resolved]
  - Fatigue [Not Recovered/Not Resolved]
  - Mucosal inflammation [Not Recovered/Not Resolved]
  - Anaemia [Recovered/Resolved]
  - Nausea [Not Recovered/Not Resolved]
  - Vomiting [Recovering/Resolving]
  - Diarrhoea [Unknown]
  - Platelet count decreased [Unknown]
  - Mucosal inflammation [Not Recovered/Not Resolved]
  - Fatigue [Not Recovered/Not Resolved]
  - Haemoglobin decreased [Recovered/Resolved]
  - Haemoglobin decreased [Not Recovered/Not Resolved]

NARRATIVE: CASE EVENT DATE: 20200213
